FAERS Safety Report 8372086-3 (Version None)
Quarter: 2012Q2

REPORT INFORMATION
  Report Type: 
  Country: None (occurrence: None)
  Receive Date: 20120517
  Receipt Date: 20120507
  Transmission Date: 20120825
  Serious: Yes (Other)
  Sender: FDA-Public Use
  Company Number: 2012MA005790

PATIENT

DRUGS (1)
  1. FEVERALL [Suspect]
     Dosage: 100 MG/KG

REACTIONS (1)
  - OVERDOSE [None]
